FAERS Safety Report 19506585 (Version 1)
Quarter: 2021Q3

REPORT INFORMATION
  Report Type: Spontaneous
  Country: US (occurrence: US)
  Receive Date: 20210708
  Receipt Date: 20210708
  Transmission Date: 20211014
  Serious: Yes (Disabling)
  Sender: FDA-Public Use
  Company Number: None

PATIENT
  Age: 67 Year
  Sex: Male
  Weight: 90 kg

DRUGS (1)
  1. MOXIFLOXACIN. [Suspect]
     Active Substance: MOXIFLOXACIN
     Indication: LIVER ABSCESS
     Dosage: ?          QUANTITY:1 TABLET(S);?
     Route: 048
     Dates: start: 20200313, end: 20200402

REACTIONS (5)
  - Joint swelling [None]
  - Arthralgia [None]
  - Ligament disorder [None]
  - Tenosynovitis stenosans [None]
  - Arthritis [None]

NARRATIVE: CASE EVENT DATE: 20200705
